FAERS Safety Report 4462967-5 (Version None)
Quarter: 2004Q3

REPORT INFORMATION
  Report Type: 
  Country: None (occurrence: None)
  Receive Date: 20040927
  Receipt Date: 20040915
  Transmission Date: 20050211
  Serious: Yes (Other)
  Sender: FDA-Public Use
  Company Number: FR-2004-031980

PATIENT
  Sex: Female

DRUGS (1)
  1. MIRENA [Suspect]
     Dosage: 20 MICROG, CONT, INTRA-UTERINE
     Route: 015
     Dates: end: 20040101

REACTIONS (1)
  - BREAST CANCER FEMALE [None]
